FAERS Safety Report 16028331 (Version 4)
Quarter: 2019Q2

REPORT INFORMATION
  Report Type: Spontaneous
  Country: US (occurrence: US)
  Receive Date: 20190304
  Receipt Date: 20190531
  Transmission Date: 20190711
  Serious: Yes (Other)
  Sender: FDA-Public Use
  Company Number: US-GLAXOSMITHKLINE-US2019GSK038486

PATIENT
  Sex: Male

DRUGS (2)
  1. PREVACID [Suspect]
     Active Substance: LANSOPRAZOLE
     Indication: PEPTIC ULCER
     Dosage: 30 MG, UNK
     Route: 065
  2. PREVACID [Suspect]
     Active Substance: LANSOPRAZOLE
     Indication: PEPTIC ULCER
     Dosage: 15 MG, UNK
     Route: 065

REACTIONS (8)
  - Chronic kidney disease [Unknown]
  - Pyelonephritis acute [Unknown]
  - Blood creatinine increased [Unknown]
  - Renal injury [Unknown]
  - Nephrolithiasis [Unknown]
  - Biopsy kidney [Unknown]
  - Acute kidney injury [Unknown]
  - Renal failure [Unknown]
